FAERS Safety Report 5892265-4 (Version None)
Quarter: 2008Q3

REPORT INFORMATION
  Report Type: 
  Country: None (occurrence: None)
  Receive Date: 20080919
  Receipt Date: 20080910
  Transmission Date: 20090109
  Serious: Yes (Disabling)
  Sender: FDA-Public Use
  Company Number: APP200800435

PATIENT
  Age: 44 Year
  Sex: Male

DRUGS (10)
  1. SENSORCAINE [Suspect]
     Indication: MUSCULOSKELETAL PAIN
     Dosage: 35 ML, 0.5%
     Dates: start: 20060619, end: 20060619
  2. BUPIVACAINE WITH EPINEPHRINE (MARCAINE WITH EPINEPHRINE /0087901/) [Suspect]
     Indication: MUSCULOSKELETAL PAIN
     Dosage: 30 ML, 0.5%
     Dates: start: 20051222, end: 20051222
  3. XYLOCAINE [Suspect]
     Indication: MUSCULOSKELETAL PAIN
     Dosage: 250 ML, 2% CONTINUOUS VIA PAIN PUMP; 270 ML, 2% CONTINUOUS VIA PAIN PUMP
     Dates: start: 20051222
  4. XYLOCAINE [Suspect]
     Indication: MUSCULOSKELETAL PAIN
     Dosage: 250 ML, 2% CONTINUOUS VIA PAIN PUMP; 270 ML, 2% CONTINUOUS VIA PAIN PUMP
     Dates: start: 20060619
  5. PAIN PUMP [Suspect]
     Indication: MUSCULOSKELETAL PAIN
     Dates: start: 20051222
  6. STRYKER PAIN PUMP [Suspect]
     Indication: MUSCULOSKELETAL PAIN
     Dates: start: 20060619
  7. SODIUM CHLORIDE [Concomitant]
  8. METHYLPREDNISOLONE [Concomitant]
  9. METHYLPREDNISOLONE IN 4 ML 0.5 % SENSORCAINE [Concomitant]
  10. DEPO-MEDROL [Concomitant]

REACTIONS (2)
  - CHONDROLYSIS [None]
  - MUSCULOSKELETAL PAIN [None]
